FAERS Safety Report 16117384 (Version 1)
Quarter: 2019Q2

REPORT INFORMATION
  Report Type: Spontaneous
  Country: US (occurrence: US)
  Receive Date: 20190325
  Receipt Date: 20190325
  Transmission Date: 20190711
  Serious: Yes (Other)
  Sender: FDA-Public Use
  Company Number: None

PATIENT
  Age: 71 Year
  Sex: Female
  Weight: 78.75 kg

DRUGS (8)
  1. VIT.C [Concomitant]
  2. EYE VISION SUPPLEMENT [Concomitant]
  3. GARLIC. [Concomitant]
     Active Substance: GARLIC
  4. GINGER. [Concomitant]
     Active Substance: GINGER
  5. METOPROLOL TART 25 MG [Suspect]
     Active Substance: METOPROLOL
     Indication: PALPITATIONS
     Dosage: ?          QUANTITY:1 TABLET(S);?
     Route: 048
  6. CALCIUM/MAGNESIUM [Concomitant]
     Active Substance: CALCIUM\MAGNESIUM
  7. VIT.E [Concomitant]
  8. GLUCOSAMINE/CONDTRITIN [Concomitant]

REACTIONS (5)
  - Hyperhidrosis [None]
  - Musculoskeletal chest pain [None]
  - Pain in extremity [None]
  - Chest pain [None]
  - Defaecation urgency [None]

NARRATIVE: CASE EVENT DATE: 20190305
